FAERS Safety Report 6162085-4 (Version None)
Quarter: 2009Q2

REPORT INFORMATION
  Report Type: 
  Country: None (occurrence: None)
  Receive Date: 20090417
  Receipt Date: 20081106
  Transmission Date: 20091009
  Serious: Yes (Hospitalization)
  Sender: FDA-Public Use
  Company Number: AMAN20080018

PATIENT
  Age: 83 Year
  Sex: Male

DRUGS (1)
  1. AMANTADINE HCL [Suspect]
     Indication: PARKINSON'S DISEASE
     Dates: start: 20080901

REACTIONS (2)
  - FALL [None]
  - HALLUCINATION [None]
